FAERS Safety Report 15792519 (Version 1)
Quarter: 2019Q1

REPORT INFORMATION
  Report Type: Spontaneous
  Country: ES (occurrence: ES)
  Receive Date: 20190107
  Receipt Date: 20190107
  Transmission Date: 20190417
  Serious: Yes (Death, Hospitalization, Other)
  Sender: FDA-Public Use
  Company Number: ES-AUROBINDO-AUR-APL-2018-063982

PATIENT
  Age: 77 Year
  Sex: Female

DRUGS (11)
  1. OXALIPLATIN. [Concomitant]
     Active Substance: OXALIPLATIN
     Indication: COLORECTAL CANCER
     Dosage: UNK
     Route: 065
  2. FLUCONAZOLE. [Concomitant]
     Active Substance: FLUCONAZOLE
     Indication: INFECTION
     Dosage: UNK
     Route: 065
  3. DIGOXIN. [Concomitant]
     Active Substance: DIGOXIN
     Indication: ATRIAL FIBRILLATION
     Dosage: UNK
     Route: 065
  4. METRONIDAZOLE. [Concomitant]
     Active Substance: METRONIDAZOLE
     Indication: PRODUCT USED FOR UNKNOWN INDICATION
     Dosage: UNK
     Route: 065
  5. AMIODARONE [Concomitant]
     Active Substance: AMIODARONE
     Indication: ATRIAL FIBRILLATION
     Dosage: UNK
     Route: 065
  6. HYDROCORTISONE. [Concomitant]
     Active Substance: HYDROCORTISONE
     Indication: PRODUCT USED FOR UNKNOWN INDICATION
     Dosage: UNK
     Route: 065
  7. CAPECITABINE. [Suspect]
     Active Substance: CAPECITABINE
     Indication: COLORECTAL CANCER
     Dosage: 1650 MILLIGRAM, TWO TIMES A DAY
     Route: 065
  8. CEFTRIAXONE. [Concomitant]
     Active Substance: CEFTRIAXONE
     Indication: PRODUCT USED FOR UNKNOWN INDICATION
     Dosage: UNK
     Route: 065
  9. NYSTATIN. [Concomitant]
     Active Substance: NYSTATIN
     Indication: PRODUCT USED FOR UNKNOWN INDICATION
     Dosage: UNK
     Route: 065
  10. MEROPENEM. [Concomitant]
     Active Substance: MEROPENEM
     Indication: INFECTION
     Dosage: UNK
     Route: 065
  11. LINEZOLID. [Concomitant]
     Active Substance: LINEZOLID
     Indication: INFECTION
     Dosage: UNK
     Route: 065

REACTIONS (23)
  - Septic shock [Fatal]
  - Hyperglycaemia [Recovered/Resolved]
  - Blood urea increased [Recovered/Resolved]
  - Pseudomonas test positive [Unknown]
  - Hyperkeratosis [Fatal]
  - Blood creatinine increased [Recovered/Resolved]
  - Klebsiella test positive [Unknown]
  - Dihydropyrimidine dehydrogenase deficiency [Unknown]
  - Mucosal toxicity [Fatal]
  - Aspergillus infection [Unknown]
  - Oral pain [Unknown]
  - Dyspnoea [Unknown]
  - Tachypnoea [Unknown]
  - Enterobacter test positive [Unknown]
  - Asthenia [Unknown]
  - Pain [Unknown]
  - Pneumonia [Fatal]
  - Mucosal inflammation [Fatal]
  - Diarrhoea [Unknown]
  - Acute kidney injury [Unknown]
  - Vomiting [Unknown]
  - Atrial fibrillation [Unknown]
  - Candida infection [Unknown]
